FAERS Safety Report 9696651 (Version 1)
Quarter: 2013Q4

REPORT INFORMATION
  Report Type: Spontaneous
  Country: US (occurrence: US)
  Receive Date: 20131119
  Receipt Date: 20131119
  Transmission Date: 20140711
  Serious: No
  Sender: FDA-Public Use
  Company Number: US-009507513-1311USA002135

PATIENT
  Sex: 0

DRUGS (1)
  1. EMEND [Suspect]

REACTIONS (2)
  - Extravasation [Unknown]
  - Incorrect route of drug administration [Unknown]
